FAERS Safety Report 8386225-1 (Version None)
Quarter: 2012Q2

REPORT INFORMATION
  Report Type: 
  Country: None (occurrence: None)
  Receive Date: 20120525
  Receipt Date: 20120524
  Transmission Date: 20120825
  Serious: Yes (Other)
  Sender: FDA-Public Use
  Company Number: US-PFIZER INC-2012052697

PATIENT
  Sex: Female

DRUGS (20)
  1. SYNTHROID [Concomitant]
     Dosage: 100 UG, TAKE ONE TABLET BY MOUTH DAILY
     Route: 048
  2. TRICOR [Concomitant]
     Dosage: 145 MG, TAKE ONE TABLET BY MOUTH DAILY
     Route: 048
  3. ALBUTEROL [Concomitant]
     Indication: WHEEZING
     Dosage: 90 MCG/ACTUATION INHALER, INHALE 2 PUFFS INTO THE LUNGS 4 TIMES DAILY AS NEEDED FOR WHEEZING
  4. DIFLUCAN [Concomitant]
     Dosage: 150 MG, TAKE TABLET NOW REPEAT IN TWO DAYS
     Route: 048
  5. CYMBALTA [Concomitant]
     Dosage: 60 MG, TAKE ONE CAPSULE BY MOUTH DAILY.
     Route: 048
  6. LASIX [Concomitant]
     Dosage: 20 MG, TAKE ONE TABLET BY MOUTH. ORDER BY ER
     Route: 048
  7. LOVAZA [Concomitant]
     Dosage: 1 G, 2X/DAY
     Route: 048
  8. ZYRTEC [Concomitant]
     Dosage: 10 MG, TAKE ONE TABLET BY MOUTH DAILY
     Route: 048
  9. POTASSIUM CHLORIDE [Concomitant]
     Dosage: 20 MEQ, TAKE ONE TABLET BY MOUTH DAILY
     Route: 048
  10. PSYLLIUM [Concomitant]
     Dosage: TAKE ONE PACKAGE BY MOUTH TWICE DAILY
     Route: 048
  11. RISPERDAL [Concomitant]
     Dosage: 2 MG, TAKE ONE TABLET BY MOUTH NIGHTLY
     Route: 048
  12. LYRICA [Suspect]
     Dosage: 50 MG
  13. CELEXA [Concomitant]
     Dosage: 40 MG, TAKE ONE TABLET BY MOUTH DAILY
     Route: 048
  14. NEXIUM [Concomitant]
     Dosage: 40 MG, TAKE ONE CAPSULE BY MOUTH EVERY MORNING BEFORE BREAKFAST
     Route: 048
  15. LYRICA [Suspect]
     Dosage: 150 MG, 3X/DAY
     Route: 048
  16. VITAMIN D [Concomitant]
     Dosage: 5000 UNIT TAB, TAKE ONE TABLET BY MOUTH DAILY
     Route: 048
  17. AMITIZA [Concomitant]
     Dosage: 24 UG, TAKE ONE CAPSULE BY MOUTH DAILY TWO TIMES DAILY
     Route: 048
  18. SYMBICORT [Concomitant]
     Dosage: 80-4.5 MCG/ACTUATION INHALER, INHALE 2 PUFFS INTO THE LUNGS 2 TIMES DAILY
  19. VICTOZA [Concomitant]
     Dosage: 0.6 MG/0.1ML (18 MG/3ML) PNLJ: INJECT 0.6 MG INTO THE SKIN DAILY.
     Route: 062
  20. PETROLATUM [Concomitant]
     Dosage: APPLY AS NEEDED

REACTIONS (10)
  - BIPOLAR I DISORDER [None]
  - OBESITY [None]
  - CHRONIC OBSTRUCTIVE PULMONARY DISEASE [None]
  - RHINITIS ALLERGIC [None]
  - OEDEMA PERIPHERAL [None]
  - VITAMIN B12 DEFICIENCY [None]
  - GASTROOESOPHAGEAL REFLUX DISEASE [None]
  - DEPRESSION [None]
  - HYPOTHYROIDISM [None]
  - NEUROPATHY PERIPHERAL [None]
